FAERS Safety Report 6667786-7 (Version None)
Quarter: 2010Q2

REPORT INFORMATION
  Report Type: 
  Country: None (occurrence: None)
  Receive Date: 20100405
  Receipt Date: 20100324
  Transmission Date: 20101027
  Serious: Yes (Hospitalization, Other)
  Sender: FDA-Public Use
  Company Number: US-BAYER-201013569BCC

PATIENT
  Age: 79 Year
  Sex: Female

DRUGS (1)
  1. FINACEA [Suspect]
     Indication: SYSTEMIC LUPUS ERYTHEMATOSUS RASH
     Route: 061
     Dates: start: 20091218, end: 20091228

REACTIONS (1)
  - ARRHYTHMIA [None]
